FAERS Safety Report 23234463 (Version 1)
Quarter: 2023Q4

REPORT INFORMATION
  Report Type: Spontaneous
  Country: FR (occurrence: None)
  Receive Date: 20231128
  Receipt Date: 20231128
  Transmission Date: 20240110
  Serious: Yes (Hospitalization)
  Sender: FDA-Public Use
  Company Number: 2023A266760

PATIENT
  Age: 39 Year
  Sex: Female

DRUGS (3)
  1. QUETIAPINE [Suspect]
     Active Substance: QUETIAPINE
     Dosage: UNKNOWN
  2. VALIUM [Suspect]
     Active Substance: DIAZEPAM
     Dosage: 100MG/J UNKNOWN
     Route: 048
  3. CODEINE [Suspect]
     Active Substance: CODEINE
     Dosage: UNKNOWN

REACTIONS (4)
  - Drug dependence [Recovering/Resolving]
  - Somnolence [Recovered/Resolved]
  - Dizziness [Recovered/Resolved]
  - Memory impairment [Recovering/Resolving]
